FAERS Safety Report 23556853 (Version 1)
Quarter: 2024Q1

REPORT INFORMATION
  Report Type: Spontaneous
  Country: CN (occurrence: CN)
  Receive Date: 20240223
  Receipt Date: 20240223
  Transmission Date: 20240410
  Serious: Yes (Life-Threatening, Hospitalization, Other)
  Sender: FDA-Public Use
  Company Number: CN-SUN PHARMACEUTICAL INDUSTRIES LTD-2024R1-432502

PATIENT
  Age: 73 Year
  Sex: Male

DRUGS (1)
  1. NOREPINEPHRINE [Suspect]
     Active Substance: NOREPINEPHRINE
     Indication: Haematoma infection
     Dosage: UNKNOWN
     Route: 065

REACTIONS (7)
  - Blood pressure measurement [Unknown]
  - Hypotension [Unknown]
  - Shock [Unknown]
  - Irritability [Unknown]
  - Thirst [Unknown]
  - Heart rate [Unknown]
  - Loss of consciousness [Unknown]
